FAERS Safety Report 17414518 (Version 3)
Quarter: 2020Q1

REPORT INFORMATION
  Report Type: Spontaneous
  Country: FR (occurrence: FR)
  Receive Date: 20200213
  Receipt Date: 20200306
  Transmission Date: 20200409
  Serious: Yes (Other)
  Sender: FDA-Public Use
  Company Number: FR-PFIZER INC-2020060009

PATIENT
  Age: 79 Year
  Sex: Male

DRUGS (10)
  1. VYNDAQEL [Suspect]
     Active Substance: TAFAMIDIS MEGLUMINE
     Indication: CARDIAC AMYLOIDOSIS
     Dosage: 20 MG, 1X/DAY
     Route: 048
     Dates: start: 20200209, end: 20200211
  2. MODOPAR [Interacting]
     Active Substance: BENSERAZIDE HYDROCHLORIDE\LEVODOPA
     Indication: PARKINSON^S DISEASE
     Dosage: 62.5 MG, 3X/DAY
  3. FLUCORTAC [Concomitant]
     Active Substance: FLUDROCORTISONE ACETATE
     Dosage: UNK
  4. DOPACEPTIN [Concomitant]
     Active Substance: APOMORPHINE HYDROCHLORIDE
     Indication: PARKINSON^S DISEASE
     Dosage: IN PUMP 5 + 5, 5 THE DAY
     Route: 058
  5. FUROSEMIDE. [Concomitant]
     Active Substance: FUROSEMIDE
     Dosage: 40 TAKEN ONCE
  6. GUTRON [Concomitant]
     Active Substance: MIDODRINE
     Dosage: UNK
  7. MODOPAR [Interacting]
     Active Substance: BENSERAZIDE HYDROCHLORIDE\LEVODOPA
     Dosage: 125 MG, 2X/DAY
  8. ATORVASTATIN [Concomitant]
     Active Substance: ATORVASTATIN
     Dosage: 40 ONCE DAILY
  9. DUOPLAVIN [Concomitant]
     Active Substance: ASPIRIN\CLOPIDOGREL
     Dosage: 1 DF, 1X/DAY
  10. ALPRAZOLAM. [Concomitant]
     Active Substance: ALPRAZOLAM
     Indication: STRESS
     Dosage: 0.5 MG, DAILY

REACTIONS (4)
  - Paralysis [Recovering/Resolving]
  - Akinesia [Recovered/Resolved]
  - Inhibitory drug interaction [Recovering/Resolving]
  - Parkinsonism [Recovered/Resolved]

NARRATIVE: CASE EVENT DATE: 20200211
